FAERS Safety Report 8211656-X (Version None)
Quarter: 2012Q1

REPORT INFORMATION
  Report Type: 
  Country: None (occurrence: None)
  Receive Date: 20120315
  Receipt Date: 20120309
  Transmission Date: 20120608
  Serious: Yes (Other)
  Sender: FDA-Public Use
  Company Number: IR-B.I. PHARMACEUTICALS,INC./RIDGEFIELD-2012-EU-01407GD

PATIENT
  Sex: Female

DRUGS (5)
  1. OMEPRAZOLE [Suspect]
     Indication: DYSPEPSIA
  2. OMEPRAZOLE [Suspect]
     Indication: ABDOMINAL PAIN UPPER
  3. BRONCHODILATOR [Concomitant]
     Indication: ASTHMA
  4. RANITIDINE [Suspect]
     Indication: DYSPEPSIA
  5. RANITIDINE [Suspect]
     Indication: ABDOMINAL PAIN UPPER

REACTIONS (2)
  - STRONGYLOIDIASIS [None]
  - GASTRIC INFECTION [None]
